FAERS Safety Report 23512922 (Version 1)
Quarter: 2024Q1

REPORT INFORMATION
  Report Type: Spontaneous
  Country: US (occurrence: None)
  Receive Date: 20240209
  Receipt Date: 20240209
  Transmission Date: 20240410
  Serious: Yes (Hospitalization)
  Sender: FDA-Public Use
  Company Number: None

PATIENT
  Age: 58 Year
  Sex: Female
  Weight: 57.7 kg

DRUGS (2)
  1. DEUTETRABENAZINE [Suspect]
     Active Substance: DEUTETRABENAZINE
     Indication: Huntington^s disease
     Dosage: FREQUENCY : TWICE A DAY;?
     Route: 048
     Dates: start: 20230501, end: 20240204
  2. TETRABENAZINE [Suspect]
     Active Substance: TETRABENAZINE
     Dosage: FREQUENCY : TWICE A DAY;?
     Route: 048
     Dates: start: 20230501, end: 20240204

REACTIONS (5)
  - Subdural haemorrhage [None]
  - Drug interaction [None]
  - Fall [None]
  - Contraindicated product administered [None]
  - Product prescribing issue [None]

NARRATIVE: CASE EVENT DATE: 20240204
